FAERS Safety Report 6979380-9 (Version None)
Quarter: 2010Q3

REPORT INFORMATION
  Report Type: 
  Country: None (occurrence: None)
  Receive Date: 20100910
  Receipt Date: 20100910
  Transmission Date: 20110219
  Serious: Yes (Life-Threatening, Hospitalization, Disabling, Other)
  Sender: FDA-Public Use
  Company Number: None

PATIENT
  Sex: Male
  Weight: 104.3273 kg

DRUGS (2)
  1. GLEEVEC [Suspect]
     Indication: LEUKAEMIA
     Dosage: ONE TABLET DAILY 2 TABLET DAILY
     Dates: start: 20100302
  2. GLEEVEC [Suspect]
     Indication: LEUKAEMIA
     Dosage: ONE TABLET DAILY 2 TABLET DAILY
     Dates: start: 20100501

REACTIONS (6)
  - ABNORMAL BEHAVIOUR [None]
  - DEPRESSION [None]
  - MOOD ALTERED [None]
  - PERSONALITY CHANGE [None]
  - PHYSICAL ABUSE [None]
  - VERBAL ABUSE [None]
